FAERS Safety Report 20846680 (Version 40)
Quarter: 2025Q1

REPORT INFORMATION
  Report Type: Report from Study
  Country: JP (occurrence: JP)
  Receive Date: 20220519
  Receipt Date: 20250316
  Transmission Date: 20250409
  Serious: Yes (Hospitalization, Other)
  Sender: TAKEDA
  Company Number: JP-TAKEDA-2022TJP048853

PATIENT
  Age: 67 Year
  Sex: Male

DRUGS (8)
  1. ADYNOVATE [Suspect]
     Active Substance: ANTIHEMOPHILIC FACTOR, HUMAN RECOMBINANT
     Indication: Factor VIII deficiency
     Dosage: 3000 INTERNATIONAL UNIT, 2/WEEK
     Dates: start: 20220101
  2. ADYNOVATE [Suspect]
     Active Substance: ANTIHEMOPHILIC FACTOR, HUMAN RECOMBINANT
     Dosage: 3000 INTERNATIONAL UNIT, 3/WEEK
  3. ADYNOVATE [Suspect]
     Active Substance: ANTIHEMOPHILIC FACTOR, HUMAN RECOMBINANT
  4. MODERNA COVID-19 VACCINE [Suspect]
     Active Substance: ELASOMERAN
     Indication: COVID-19 immunisation
  5. Comirnaty [Concomitant]
     Indication: COVID-19 immunisation
  6. Comirnaty [Concomitant]
  7. Covid-19 vaccine [Concomitant]
     Indication: COVID-19 immunisation
     Dates: start: 20220807, end: 20220807
  8. ACETAMINOPHEN\TRAMADOL HYDROCHLORIDE [Concomitant]
     Active Substance: ACETAMINOPHEN\TRAMADOL HYDROCHLORIDE
     Indication: Pain
     Dosage: UNK UNK, BID

REACTIONS (46)
  - Haemorrhage subcutaneous [Unknown]
  - Internal haemorrhage [Recovered/Resolved]
  - Haemorrhage subcutaneous [Recovering/Resolving]
  - Internal haemorrhage [Unknown]
  - Myocardial infarction [Unknown]
  - Haemorrhage subcutaneous [Recovered/Resolved]
  - Puncture site haemorrhage [Recovered/Resolved]
  - Haemorrhage subcutaneous [Unknown]
  - Hepatitis B [Recovered/Resolved]
  - Injection site induration [Unknown]
  - Hepatic hypertrophy [Unknown]
  - Cold sweat [Unknown]
  - Weight increased [Unknown]
  - Cardiac discomfort [Unknown]
  - Joint swelling [Unknown]
  - Ligament sprain [Unknown]
  - Blood glucose increased [Unknown]
  - Blood urea increased [Unknown]
  - Glycosylated haemoglobin increased [Unknown]
  - Bone pain [Recovering/Resolving]
  - Procedural pain [Unknown]
  - Oedema peripheral [Recovering/Resolving]
  - Feeling hot [Recovering/Resolving]
  - Dental caries [Unknown]
  - Pain in extremity [Unknown]
  - Pyrexia [Recovered/Resolved]
  - Puncture site swelling [Unknown]
  - Back pain [Unknown]
  - Fatigue [Unknown]
  - Anxiety [Unknown]
  - Osteoarthritis [Unknown]
  - Complication associated with device [Recovered/Resolved]
  - Pyrexia [Unknown]
  - Gait disturbance [Unknown]
  - Blood glucose increased [Unknown]
  - Blood pressure increased [Unknown]
  - Arthralgia [Recovering/Resolving]
  - Ocular hyperaemia [Recovering/Resolving]
  - Arthralgia [Unknown]
  - Nasopharyngitis [Unknown]
  - Erythema [Unknown]
  - Traumatic haemorrhage [Recovered/Resolved]
  - Body fat disorder [Unknown]
  - Blood pressure increased [Unknown]
  - Blood test abnormal [Unknown]
  - Injection site pain [Unknown]

NARRATIVE: CASE EVENT DATE: 20220807
